FAERS Safety Report 19388966 (Version 2)
Quarter: 2022Q4

REPORT INFORMATION
  Report Type: Report from Study
  Country: FR (occurrence: FR)
  Receive Date: 20210608
  Receipt Date: 20221208
  Transmission Date: 20230112
  Serious: Yes (Hospitalization)
  Sender: FDA-Public Use
  Company Number: FR-TAKEDA-FR201725893

PATIENT
  Age: 61 Year
  Sex: Female
  Weight: 60 kg

DRUGS (26)
  1. TEDUGLUTIDE [Suspect]
     Active Substance: TEDUGLUTIDE
     Indication: Short-bowel syndrome
     Dosage: 3.15 MILLIGRAM, QD
     Route: 042
     Dates: start: 20170322, end: 20180603
  2. TEDUGLUTIDE [Suspect]
     Active Substance: TEDUGLUTIDE
     Indication: Short-bowel syndrome
     Dosage: 3.15 MILLIGRAM, QD
     Route: 042
     Dates: start: 20170322, end: 20180603
  3. TEDUGLUTIDE [Suspect]
     Active Substance: TEDUGLUTIDE
     Indication: Short-bowel syndrome
     Dosage: 3.15 MILLIGRAM, QD
     Route: 042
     Dates: start: 20170322, end: 20180603
  4. TEDUGLUTIDE [Suspect]
     Active Substance: TEDUGLUTIDE
     Indication: Short-bowel syndrome
     Dosage: 3.15 MILLIGRAM, QD
     Route: 042
     Dates: start: 20170322, end: 20180603
  5. TEDUGLUTIDE [Suspect]
     Active Substance: TEDUGLUTIDE
     Dosage: 3 MILLIGRAM, QD
     Route: 042
     Dates: start: 20180604, end: 202006
  6. TEDUGLUTIDE [Suspect]
     Active Substance: TEDUGLUTIDE
     Dosage: 3 MILLIGRAM, QD
     Route: 042
     Dates: start: 20180604, end: 202006
  7. TEDUGLUTIDE [Suspect]
     Active Substance: TEDUGLUTIDE
     Dosage: 3 MILLIGRAM, QD
     Route: 042
     Dates: start: 20180604, end: 202006
  8. TEDUGLUTIDE [Suspect]
     Active Substance: TEDUGLUTIDE
     Dosage: 3 MILLIGRAM, QD
     Route: 042
     Dates: start: 20180604, end: 202006
  9. TEDUGLUTIDE [Suspect]
     Active Substance: TEDUGLUTIDE
     Dosage: 3.200 MILLIGRAM
     Route: 042
     Dates: start: 202006, end: 20210425
  10. TEDUGLUTIDE [Suspect]
     Active Substance: TEDUGLUTIDE
     Dosage: 3.200 MILLIGRAM
     Route: 042
     Dates: start: 202006, end: 20210425
  11. TEDUGLUTIDE [Suspect]
     Active Substance: TEDUGLUTIDE
     Dosage: 3.200 MILLIGRAM
     Route: 042
     Dates: start: 202006, end: 20210425
  12. TEDUGLUTIDE [Suspect]
     Active Substance: TEDUGLUTIDE
     Dosage: 3.200 MILLIGRAM
     Route: 042
     Dates: start: 202006, end: 20210425
  13. TEDUGLUTIDE [Suspect]
     Active Substance: TEDUGLUTIDE
     Dosage: 3 MILLIGRAM, QD
     Route: 042
     Dates: start: 20210426, end: 20210923
  14. TEDUGLUTIDE [Suspect]
     Active Substance: TEDUGLUTIDE
     Dosage: 3 MILLIGRAM, QD
     Route: 042
     Dates: start: 20210426, end: 20210923
  15. TEDUGLUTIDE [Suspect]
     Active Substance: TEDUGLUTIDE
     Dosage: 3 MILLIGRAM, QD
     Route: 042
     Dates: start: 20210426, end: 20210923
  16. TEDUGLUTIDE [Suspect]
     Active Substance: TEDUGLUTIDE
     Dosage: 3 MILLIGRAM, QD
     Route: 042
     Dates: start: 20210426, end: 20210923
  17. TEDUGLUTIDE [Suspect]
     Active Substance: TEDUGLUTIDE
     Dosage: 2.6 MILLIGRAM, QD
     Route: 042
     Dates: start: 20210924
  18. TEDUGLUTIDE [Suspect]
     Active Substance: TEDUGLUTIDE
     Dosage: 2.6 MILLIGRAM, QD
     Route: 042
     Dates: start: 20210924
  19. TEDUGLUTIDE [Suspect]
     Active Substance: TEDUGLUTIDE
     Dosage: 2.6 MILLIGRAM, QD
     Route: 042
     Dates: start: 20210924
  20. TEDUGLUTIDE [Suspect]
     Active Substance: TEDUGLUTIDE
     Dosage: 2.6 MILLIGRAM, QD
     Route: 042
     Dates: start: 20210924
  21. PREVISCAN [Concomitant]
     Indication: Thrombosis prophylaxis
     Dosage: UNK
     Route: 065
  22. TERIPARATIDE [Concomitant]
     Active Substance: TERIPARATIDE
     Indication: Osteoporosis
     Dosage: UNK
     Route: 065
  23. LYRICA [Concomitant]
     Active Substance: PREGABALIN
     Indication: Depression
     Dosage: UNK
     Route: 065
  24. URSODIOL [Concomitant]
     Active Substance: URSODIOL
     Indication: Cholecystectomy
     Dosage: UNK
     Route: 065
  25. DURAGESIC [Concomitant]
     Active Substance: FENTANYL
     Indication: Back pain
     Dosage: 175 MICROGRAM, EVERY 3 DAYS
     Route: 062
     Dates: start: 20190623
  26. KETAMINE [Concomitant]
     Active Substance: KETAMINE
     Indication: Back pain
     Dosage: 30 MILLIGRAM, QD
     Route: 042
     Dates: start: 20190618, end: 20190619

REACTIONS (1)
  - Complication associated with device [Recovered/Resolved]

NARRATIVE: CASE EVENT DATE: 20170903
